FAERS Safety Report 15196672 (Version 1)
Quarter: 2018Q3

REPORT INFORMATION
  Report Type: Report from Study
  Country: CA (occurrence: CA)
  Receive Date: 20180725
  Receipt Date: 20180725
  Transmission Date: 20181010
  Serious: Yes (Hospitalization)
  Sender: FDA-Public Use
  Company Number: CA-JNJFOC-20180717835

PATIENT
  Age: 54 Year
  Sex: Male

DRUGS (19)
  1. BLINDED; RIVAROXABAN [Suspect]
     Active Substance: RIVAROXABAN
     Indication: ISCHAEMIC STROKE
     Route: 048
     Dates: start: 20171014, end: 20180703
  2. SYMBICORT [Concomitant]
     Active Substance: BUDESONIDE\FORMOTEROL FUMARATE DIHYDRATE
     Route: 055
  3. PROPAFENONE. [Concomitant]
     Active Substance: PROPAFENONE
     Indication: ARRHYTHMIA
     Route: 048
     Dates: start: 20171013
  4. SALBUTAMOL [Concomitant]
     Active Substance: ALBUTEROL
     Route: 055
     Dates: start: 20171013
  5. PROPAFENONE. [Concomitant]
     Active Substance: PROPAFENONE
     Dosage: 150 MG, HS
     Route: 048
     Dates: start: 201710
  6. VENTOLIN [Concomitant]
     Active Substance: ALBUTEROL SULFATE
     Indication: CHRONIC OBSTRUCTIVE PULMONARY DISEASE
     Route: 055
     Dates: start: 20180611, end: 20180611
  7. SILDENAFIL. [Concomitant]
     Active Substance: SILDENAFIL
     Route: 048
     Dates: start: 201707
  8. PROPAFENONE. [Concomitant]
     Active Substance: PROPAFENONE
     Indication: ARRHYTHMIA
     Route: 048
     Dates: start: 20180611, end: 20180611
  9. GRAVOL [Concomitant]
     Active Substance: DIMENHYDRINATE
     Indication: NAUSEA
     Route: 042
     Dates: start: 20180611, end: 20180611
  10. BISOPROLOL [Concomitant]
     Active Substance: BISOPROLOL
     Indication: ATRIAL FIBRILLATION
     Route: 048
     Dates: start: 201704
  11. SALBUTAMOL [Concomitant]
     Active Substance: ALBUTEROL
     Route: 055
     Dates: start: 201707
  12. PANTOLOC [Concomitant]
     Active Substance: PANTOPRAZOLE SODIUM
     Indication: GASTROOESOPHAGEAL REFLUX DISEASE
     Route: 048
     Dates: start: 20161013
  13. BLINDED; RIVAROXABAN [Suspect]
     Active Substance: RIVAROXABAN
     Indication: COGNITIVE DISORDER
     Route: 048
     Dates: start: 20171014, end: 20180703
  14. PROPAFENONE. [Concomitant]
     Active Substance: PROPAFENONE
     Dosage: 300 MG, OM
     Route: 048
     Dates: start: 201710
  15. SPIRIVA [Concomitant]
     Active Substance: TIOTROPIUM BROMIDE MONOHYDRATE
     Indication: PULMONARY FIBROSIS
     Route: 055
     Dates: start: 20161010
  16. BISOPROLOL [Concomitant]
     Active Substance: BISOPROLOL
     Indication: ATRIAL FIBRILLATION
     Route: 048
     Dates: start: 20171013
  17. PANTOPRAZOLE [Concomitant]
     Active Substance: PANTOPRAZOLE
     Route: 048
     Dates: start: 201610
  18. PROPAFENONE. [Concomitant]
     Active Substance: PROPAFENONE
     Indication: ATRIAL FIBRILLATION
     Route: 048
     Dates: start: 20171013
  19. PROPAFENONE. [Concomitant]
     Active Substance: PROPAFENONE
     Indication: ATRIAL FIBRILLATION
     Route: 048
     Dates: start: 20180611, end: 20180611

REACTIONS (3)
  - Atrial fibrillation [Recovered/Resolved]
  - Pulmonary fibrosis [Recovered/Resolved]
  - Chronic obstructive pulmonary disease [Recovered/Resolved]

NARRATIVE: CASE EVENT DATE: 20180703
